FAERS Safety Report 4374994-7 (Version None)
Quarter: 2004Q2

REPORT INFORMATION
  Report Type: 
  Country: None (occurrence: None)
  Receive Date: 20040604
  Receipt Date: 20040526
  Transmission Date: 20050107
  Serious: Yes (Hospitalization)
  Sender: FDA-Public Use
  Company Number: HQWYE847712MAY04

PATIENT
  Age: 60 Year
  Sex: Female

DRUGS (1)
  1. PREMARIN [Suspect]
     Indication: HORMONE REPLACEMENT THERAPY
     Dosage: ORAL
     Route: 048
     Dates: start: 19890101

REACTIONS (4)
  - DRY SKIN [None]
  - PULMONARY EMBOLISM [None]
  - SKIN WRINKLING [None]
  - TRIPLE VESSEL BYPASS GRAFT [None]
